FAERS Safety Report 9537938 (Version 2)
Quarter: 2013Q4

REPORT INFORMATION
  Report Type: Spontaneous
  Country: DK (occurrence: FR)
  Receive Date: 20130919
  Receipt Date: 20131010
  Transmission Date: 20140711
  Serious: Yes (Other)
  Sender: FDA-Public Use
  Company Number: FR-FRI-1000048966

PATIENT
  Age: 77 Year
  Sex: Male
  Weight: 75 kg

DRUGS (16)
  1. ESCITALOPRAM [Suspect]
     Indication: DEPRESSION
     Dosage: 5 MG
     Route: 048
     Dates: start: 201307
  2. ESCITALOPRAM [Interacting]
     Indication: DEPRESSION
     Dosage: 10 MG
     Route: 048
     Dates: start: 20130801
  3. PREVISCAN [Interacting]
     Indication: TRANSIENT ISCHAEMIC ATTACK
     Dosage: 3 OR 4 DF DAILY
     Route: 048
     Dates: start: 2007, end: 20130909
  4. PREVISCAN [Interacting]
     Indication: CEREBROVASCULAR ACCIDENT
  5. PREVISCAN [Interacting]
     Indication: ARRHYTHMIA
  6. SOLUPRED [Interacting]
     Route: 048
     Dates: start: 20130905, end: 20130908
  7. SOTALEX [Concomitant]
     Indication: ATRIAL FIBRILLATION
     Dosage: 80 MG
     Dates: start: 2010
  8. ALDACTONE [Concomitant]
     Indication: HYPERTENSION
  9. SINEMET [Concomitant]
     Indication: PARKINSONISM
     Dosage: 8 DF
     Route: 048
  10. MODOPAR [Concomitant]
     Indication: PARKINSONISM
     Dosage: 1 DF
     Route: 048
     Dates: start: 2007
  11. ALPRAZOLAM [Concomitant]
     Indication: ANXIETY
     Dosage: 0.50 MG
     Route: 048
     Dates: start: 2010
  12. DOLIPRANE [Concomitant]
     Indication: PAIN
     Dosage: 4 DF
     Dates: start: 2012
  13. MIANSERIN [Concomitant]
  14. ZOLPIDEM [Concomitant]
  15. APROVEL [Concomitant]
  16. FINASTERIDE [Concomitant]

REACTIONS (7)
  - Haemarthrosis [Recovered/Resolved]
  - Synovitis [Recovered/Resolved]
  - Inflammatory marker increased [Recovered/Resolved]
  - International normalised ratio increased [Recovered/Resolved]
  - Oedema [Recovered/Resolved]
  - Haematoma [Recovered/Resolved]
  - Drug interaction [Recovered/Resolved]
